FAERS Safety Report 4983649-7 (Version None)
Quarter: 2006Q2

REPORT INFORMATION
  Report Type: 
  Country: None (occurrence: None)
  Receive Date: 20060425
  Receipt Date: 20060425
  Transmission Date: 20061013
  Serious: Yes (Other)
  Sender: FDA-Public Use
  Company Number: None

PATIENT
  Age: 70 Year
  Sex: Male
  Weight: 114.3 kg

DRUGS (7)
  1. ATENOLOL [Suspect]
  2. ROSIGLITAZONE MALEATE [Concomitant]
  3. THIORIDAZINE HCL [Concomitant]
  4. INSULIN NPH HUMAN / NOVOLIN N [Concomitant]
  5. LISINOPRIL [Concomitant]
  6. SIMVASTATIN [Concomitant]
  7. CALCIPOTRIENE [Concomitant]

REACTIONS (1)
  - FATIGUE [None]
